FAERS Safety Report 8550578-1 (Version None)
Quarter: 2012Q3

REPORT INFORMATION
  Report Type: 
  Country: None (occurrence: None)
  Receive Date: 20120718
  Receipt Date: 20120705
  Transmission Date: 20120928
  Serious: Yes (Hospitalization)
  Sender: FDA-Public Use
  Company Number: AUR-APL-2012-02974

PATIENT
  Age: 72 Year
  Sex: Female

DRUGS (10)
  1. CLONIDINE [Concomitant]
  2. FUROSEMIDE [Concomitant]
  3. REPAGLINIDINE (REPAGLINIDINE) [Concomitant]
  4. NITROGLICERINE (GLYCERYL TRINITRATE) [Concomitant]
  5. SPIRIVA (TIOTRIPIUM BROMIDE) [Concomitant]
  6. EUCREAS (EUCREAS) [Concomitant]
  7. RAMIPRIL [Suspect]
     Indication: HYPERTENSION
     Dosage: 20 MG/DAY, ORAL
     Route: 048
     Dates: start: 20120417, end: 20120501
  8. ASPIRIN [Concomitant]
  9. PANTOPRAZOLE SODIUM [Concomitant]
  10. AMLODIPINE BESYLATE [Concomitant]

REACTIONS (2)
  - RENAL FAILURE ACUTE [None]
  - TONGUE OEDEMA [None]
